FAERS Safety Report 25953737 (Version 2)
Quarter: 2025Q4

REPORT INFORMATION
  Report Type: Report from Study
  Country: US (occurrence: US)
  Receive Date: 20251023
  Receipt Date: 20251119
  Transmission Date: 20260119
  Serious: Yes (Death)
  Sender: OTSUKA
  Company Number: US-MMM-Otsuka-H9EGFLCS

PATIENT
  Sex: Female

DRUGS (1)
  1. DEXTROMETHORPHAN HYDROBROMIDE\QUINIDINE SULFATE [Suspect]
     Active Substance: DEXTROMETHORPHAN HYDROBROMIDE\QUINIDINE SULFATE
     Indication: Affect lability
     Dosage: 20/10MG (60 QUANTITY, 2 A DAY) USED A 30-DAY SUPPLY OF NEUDEXTA
     Route: 065

REACTIONS (1)
  - Death [Fatal]

NARRATIVE: CASE EVENT DATE: 20250101
